FAERS Safety Report 25281181 (Version 1)
Quarter: 2025Q2

REPORT INFORMATION
  Report Type: Report from Study
  Country: US (occurrence: US)
  Receive Date: 20250508
  Receipt Date: 20250508
  Transmission Date: 20250716
  Serious: Yes (Hospitalization)
  Sender: CSL BEHRING
  Company Number: US-BEH-2025202749

PATIENT
  Age: 33 Year
  Sex: Female
  Weight: 88.435 kg

DRUGS (3)
  1. BERINERT [Suspect]
     Active Substance: HUMAN C1-ESTERASE INHIBITOR
     Indication: Hereditary angioedema
     Dosage: RECONSTITUTE AND ADMINISTERE 6000 U (TWO 3000U VIALS) TWICE WEEKLY EVERY 3 4
     Route: 058
  2. HAEGARDA [Suspect]
     Active Substance: HUMAN C1-ESTERASE INHIBITOR
     Indication: Hereditary angioedema
     Dosage: 6300 IU, BIW
     Route: 058
  3. HAEGARDA [Suspect]
     Active Substance: HUMAN C1-ESTERASE INHIBITOR
     Indication: Prophylaxis
     Route: 065

REACTIONS (3)
  - Endotracheal intubation [Unknown]
  - Hospitalisation [Unknown]
  - Laryngospasm [Unknown]

NARRATIVE: CASE EVENT DATE: 20250201
